FAERS Safety Report 11545363 (Version 1)
Quarter: 2015Q3

REPORT INFORMATION
  Report Type: Spontaneous
  Country: US (occurrence: None)
  Receive Date: 20150923
  Receipt Date: 20150923
  Transmission Date: 20151125
  Serious: Yes (Other)
  Sender: FDA-Public Use
  Company Number: None

PATIENT
  Age: 53 Year
  Sex: Female
  Weight: 56.8 kg

DRUGS (2)
  1. 4% ARTICAINE W/1:100,000 EPINEPHERINE [Suspect]
     Active Substance: ARTICAINE\EPINEPHRINE
     Indication: LOCAL ANAESTHESIA
     Route: 051
     Dates: start: 20150902
  2. 2% LIDOCAINE W/1:100,00 EPINEPHRINE 2% (36 MG PER CAPSULE) [Suspect]
     Active Substance: EPINEPHRINE\LIDOCAINE
     Route: 051

REACTIONS (3)
  - Hypoaesthesia oral [None]
  - Delayed recovery from anaesthesia [None]
  - Anaesthetic complication [None]

NARRATIVE: CASE EVENT DATE: 20150902
